FAERS Safety Report 4539471-9 (Version None)
Quarter: 2004Q4

REPORT INFORMATION
  Report Type: 
  Country: None (occurrence: None)
  Receive Date: 20041222
  Receipt Date: 20041214
  Transmission Date: 20050328
  Serious: Yes (Hospitalization)
  Sender: FDA-Public Use
  Company Number: 2004AP06297

PATIENT
  Age: 63 Year
  Sex: Female

DRUGS (3)
  1. NOLVADEX [Suspect]
     Indication: BREAST CANCER
     Dates: start: 20040606, end: 20040901
  2. UFT [Suspect]
     Dates: start: 20040606
  3. HICEE [Concomitant]

REACTIONS (4)
  - CARDIOMYOPATHY [None]
  - DRUG INEFFECTIVE [None]
  - FALL [None]
  - FEELING ABNORMAL [None]
